FAERS Safety Report 17063202 (Version 2)
Quarter: 2019Q4

REPORT INFORMATION
  Report Type: Spontaneous
  Country: JP (occurrence: JP)
  Receive Date: 20191122
  Receipt Date: 20191218
  Transmission Date: 20200122
  Serious: Yes (Death, Other)
  Sender: FDA-Public Use
  Company Number: JP-B.I. PHARMACEUTICALS,INC./RIDGEFIELD-2019-NB-115416

PATIENT
  Age: 62 Year
  Sex: Male

DRUGS (2)
  1. PRAZAXA [Suspect]
     Active Substance: DABIGATRAN ETEXILATE MESYLATE
     Indication: PRODUCT USED FOR UNKNOWN INDICATION
     Route: 048
     Dates: start: 20180803
  2. MEYLON [Suspect]
     Active Substance: SODIUM BICARBONATE
     Indication: SCAN WITH CONTRAST
     Route: 042
     Dates: end: 20190617

REACTIONS (4)
  - Cardiac arrest [Unknown]
  - Pneumothorax [Unknown]
  - Pulmonary haemorrhage [Fatal]
  - Wrong product administered [Unknown]

NARRATIVE: CASE EVENT DATE: 20190617
